FAERS Safety Report 8163983-2 (Version None)
Quarter: 2012Q1

REPORT INFORMATION
  Report Type: 
  Country: None (occurrence: None)
  Receive Date: 20120224
  Receipt Date: 20120215
  Transmission Date: 20120608
  Serious: Yes (Hospitalization)
  Sender: FDA-Public Use
  Company Number: BR-ACTELION-A-CH2011-57295

PATIENT
  Sex: Female
  Weight: 56 kg

DRUGS (9)
  1. HYDROXYZINE [Concomitant]
  2. LASIX [Concomitant]
  3. OMEPRAZOLE [Concomitant]
  4. TRACLEER [Suspect]
     Indication: PULMONARY ARTERIAL HYPERTENSION
     Dosage: 125 MG, BID
     Route: 048
  5. TRACLEER [Suspect]
     Dosage: 62.5 MG, BID
     Route: 048
     Dates: start: 20070101
  6. SPIRONOLACTONE [Concomitant]
  7. COLCHICINE [Concomitant]
  8. AMIODARONE HCL [Concomitant]
  9. HYDROCHLOROTHIAZIDE [Concomitant]

REACTIONS (7)
  - CONDITION AGGRAVATED [None]
  - TACHYCARDIA [None]
  - HEART RATE IRREGULAR [None]
  - PULMONARY ARTERIAL HYPERTENSION [None]
  - MALAISE [None]
  - DYSPNOEA [None]
  - OEDEMA PERIPHERAL [None]
